FAERS Safety Report 6655311-6 (Version None)
Quarter: 2010Q1

REPORT INFORMATION
  Report Type: 
  Country: None (occurrence: None)
  Receive Date: 20100329
  Receipt Date: 20100319
  Transmission Date: 20100710
  Serious: Yes (Other)
  Sender: FDA-Public Use
  Company Number: US-SANOFI-AVENTIS-2010SA005726

PATIENT
  Age: 81 Year
  Sex: Female

DRUGS (6)
  1. MULTAQ [Suspect]
     Route: 048
     Dates: start: 20100122, end: 20100127
  2. ASPIRIN [Concomitant]
     Route: 065
  3. LABETALOL HCL [Concomitant]
     Indication: HYPERTENSION
     Route: 065
  4. LOVASTATIN [Concomitant]
     Route: 065
  5. MULTI-VITAMINS [Concomitant]
  6. TIOTROPIUM BROMIDE [Concomitant]
     Indication: CHRONIC OBSTRUCTIVE PULMONARY DISEASE
     Route: 055

REACTIONS (2)
  - ABDOMINAL PAIN [None]
  - PANCREATITIS [None]
